FAERS Safety Report 6930630-4 (Version None)
Quarter: 2010Q3

REPORT INFORMATION
  Report Type: 
  Country: None (occurrence: None)
  Receive Date: 20100818
  Receipt Date: 20100806
  Transmission Date: 20110219
  Serious: Yes (Hospitalization)
  Sender: FDA-Public Use
  Company Number: US-PFIZER INC-2010100002

PATIENT
  Sex: Female
  Weight: 81.633 kg

DRUGS (2)
  1. SUTENT [Suspect]
     Indication: RENAL CELL CARCINOMA
     Dosage: 50 MG, DAILY
     Route: 048
     Dates: start: 20100704, end: 20100718
  2. SUTENT [Suspect]
     Indication: LUNG NEOPLASM MALIGNANT

REACTIONS (2)
  - DEHYDRATION [None]
  - MALAISE [None]
